FAERS Safety Report 9666565 (Version 2)
Quarter: 2013Q4

REPORT INFORMATION
  Report Type: Report from Study
  Country: BR (occurrence: BR)
  Receive Date: 20131104
  Receipt Date: 20131216
  Transmission Date: 20140711
  Serious: Yes (Hospitalization, Disabling, Other)
  Sender: FDA-Public Use
  Company Number: PHHY2013BR124490

PATIENT
  Age: 59 Year
  Sex: Female
  Weight: 80 kg

DRUGS (7)
  1. GILENYA [Suspect]
     Indication: MULTIPLE SCLEROSIS
     Dosage: 1 DF, QD
     Route: 048
     Dates: start: 20130520, end: 201308
  2. RIVOTRIL [Concomitant]
     Dates: start: 2004
  3. PAROXETINE [Concomitant]
     Dates: start: 2004
  4. OMEPRAZOLE [Concomitant]
     Dates: start: 2004
  5. HUMECTOL [Concomitant]
     Indication: CONSTIPATION
  6. AAS [Concomitant]
     Indication: VARICOSE VEIN
     Dates: start: 2012
  7. PARACETAMOL [Concomitant]
     Indication: PAIN
     Dates: start: 2004

REACTIONS (25)
  - Coma [Unknown]
  - Multiple sclerosis [Not Recovered/Not Resolved]
  - Memory impairment [Not Recovered/Not Resolved]
  - Gait disturbance [Unknown]
  - Fatigue [Not Recovered/Not Resolved]
  - Paraesthesia [Not Recovered/Not Resolved]
  - Nervousness [Not Recovered/Not Resolved]
  - Hypoaesthesia [Not Recovered/Not Resolved]
  - Confusional state [Not Recovered/Not Resolved]
  - Constipation [Not Recovered/Not Resolved]
  - Abdominal distension [Not Recovered/Not Resolved]
  - Visual acuity reduced [Not Recovered/Not Resolved]
  - Varicose vein [Not Recovered/Not Resolved]
  - Local swelling [Not Recovered/Not Resolved]
  - Hearing impaired [Not Recovered/Not Resolved]
  - Frustration [Unknown]
  - Pain [Not Recovered/Not Resolved]
  - Malaise [Not Recovered/Not Resolved]
  - Insomnia [Not Recovered/Not Resolved]
  - Dysphonia [Not Recovered/Not Resolved]
  - Urine analysis abnormal [Unknown]
  - Dyspnoea [Not Recovered/Not Resolved]
  - Influenza [Unknown]
  - Cough [Not Recovered/Not Resolved]
  - Secretion discharge [Unknown]
